FAERS Safety Report 12116625 (Version 1)
Quarter: 2016Q1

REPORT INFORMATION
  Report Type: Report from Study
  Country: US (occurrence: None)
  Receive Date: 20160225
  Receipt Date: 20160225
  Transmission Date: 20160526
  Serious: Yes (Other)
  Sender: FDA-Public Use
  Company Number: ADR-2014-02436

PATIENT
  Age: 68 Year
  Sex: Female

DRUGS (2)
  1. DILAUDID [Suspect]
     Active Substance: HYDROMORPHONE HYDROCHLORIDE
     Indication: PAIN
     Dosage: 0.7491MG/DAY
  2. COMPOUNDED BACLOFEN INTRATHECAL 350MCG/ML [Suspect]
     Active Substance: BACLOFEN
     Indication: PAIN
     Dosage: 131.1MCG/DAY

REACTIONS (12)
  - Asthenia [None]
  - Feeling abnormal [None]
  - Disorientation [None]
  - Hypoaesthesia [None]
  - Adverse drug reaction [None]
  - Dizziness [None]
  - Mental status changes [None]
  - Oedema peripheral [None]
  - Nausea [None]
  - Fall [None]
  - Vulvovaginal discomfort [None]
  - Muscular weakness [None]
